FAERS Safety Report 18210518 (Version 1)
Quarter: 2020Q3

REPORT INFORMATION
  Report Type: Spontaneous
  Country: US (occurrence: US)
  Receive Date: 20200829
  Receipt Date: 20200829
  Transmission Date: 20201103
  Serious: No
  Sender: FDA-Public Use
  Company Number: US-ENDO PHARMACEUTICALS INC-2020-003772

PATIENT

DRUGS (2)
  1. XELJANZ [Concomitant]
     Active Substance: TOFACITINIB CITRATE
     Indication: PRURITUS
  2. PREDNISONE. [Suspect]
     Active Substance: PREDNISONE
     Indication: POLYMYALGIA RHEUMATICA
     Dosage: UNK UNKNOWN, (TRYING TO REDUCE THE DOSE)
     Route: 065
     Dates: start: 201809

REACTIONS (2)
  - Sleep deficit [Not Recovered/Not Resolved]
  - Drug ineffective [Not Recovered/Not Resolved]
